FAERS Safety Report 7073092-1 (Version None)
Quarter: 2010Q4

REPORT INFORMATION
  Report Type: 
  Country: None (occurrence: None)
  Receive Date: 20101029
  Receipt Date: 20100423
  Transmission Date: 20110411
  Serious: No
  Sender: FDA-Public Use
  Company Number: A0856474A

PATIENT
  Age: 47 Year
  Sex: Female

DRUGS (6)
  1. ADVAIR DISKUS 100/50 [Suspect]
     Indication: ASTHMA
     Dosage: 1PUFF PER DAY
     Route: 055
     Dates: start: 20090901, end: 20100101
  2. LISINOPRIL AND HYDROCHLOROTHIAZIDE [Concomitant]
  3. SPRINTEC [Concomitant]
  4. IBUPROFEN [Concomitant]
  5. FLONASE [Concomitant]
  6. PROVENTIL [Concomitant]

REACTIONS (1)
  - HEADACHE [None]
